FAERS Safety Report 5075749-0 (Version None)
Quarter: 2006Q3

REPORT INFORMATION
  Report Type: 
  Country: None (occurrence: None)
  Receive Date: 20060809
  Receipt Date: 20051205
  Transmission Date: 20061208
  Serious: No
  Sender: FDA-Public Use
  Company Number: US-AMGEN-US160235

PATIENT
  Sex: Male
  Weight: 93.5 kg

DRUGS (9)
  1. EPOGEN [Suspect]
     Indication: DIALYSIS
     Dates: start: 20040301, end: 20051206
  2. ZOLOFT [Concomitant]
  3. ALPRAZOLAM [Concomitant]
  4. NOVOLIN 70/30 [Concomitant]
  5. PRILOSEC [Concomitant]
  6. NORVASC [Concomitant]
  7. CATAPRES [Concomitant]
  8. PHOSLO [Concomitant]
  9. FOLIC ACID [Concomitant]

REACTIONS (4)
  - FURUNCLE [None]
  - PNEUMONIA [None]
  - POLYPECTOMY [None]
  - THERAPEUTIC RESPONSE DECREASED [None]
